FAERS Safety Report 4314600-0 (Version None)
Quarter: 2004Q1

REPORT INFORMATION
  Report Type: 
  Country: None (occurrence: None)
  Receive Date: 20040309
  Receipt Date: 20040220
  Transmission Date: 20041129
  Serious: Yes (Death)
  Sender: FDA-Public Use
  Company Number: 2004-DE-00854GD

PATIENT
  Age: 85 Year
  Sex: Male

DRUGS (2)
  1. AZATHIOPRINE [Suspect]
     Indication: IMMUNOSUPPRESSION
     Dosage: 100 - 150 MG PO
     Route: 048
  2. PREDNISOLONE [Suspect]
     Indication: IMMUNOSUPPRESSION
     Dosage: 1 MG/KG PO
     Route: 048

REACTIONS (3)
  - EXTRADURAL ABSCESS [None]
  - NEUTROPENIA [None]
  - SEPSIS [None]
